FAERS Safety Report 21711945 (Version 2)
Quarter: 2023Q1

REPORT INFORMATION
  Report Type: Spontaneous
  Country: FR (occurrence: FR)
  Receive Date: 20221212
  Receipt Date: 20230104
  Transmission Date: 20230417
  Serious: Yes (Other)
  Sender: FDA-Public Use
  Company Number: FR-002147023-NVSC2022FR286733

PATIENT
  Age: 58 Year

DRUGS (6)
  1. LUTATHERA [Suspect]
     Active Substance: LUTETIUM OXODOTREOTIDE LU-177
     Indication: Acute leukaemia
     Dosage: UNK, ONCE/SINGLE
     Route: 065
     Dates: start: 20161206, end: 20161206
  2. LUTATHERA [Suspect]
     Active Substance: LUTETIUM OXODOTREOTIDE LU-177
     Dosage: UNK, ONCE/SINGLE
     Route: 065
     Dates: start: 20170131, end: 20170131
  3. LUTATHERA [Suspect]
     Active Substance: LUTETIUM OXODOTREOTIDE LU-177
     Dosage: UNK, ONCE/SINGLE
     Route: 065
     Dates: start: 20170328, end: 20170328
  4. LUTATHERA [Suspect]
     Active Substance: LUTETIUM OXODOTREOTIDE LU-177
     Dosage: UNK, ONCE/SINGLE
     Route: 065
     Dates: start: 20170523, end: 20170523
  5. LUTATHERA [Suspect]
     Active Substance: LUTETIUM OXODOTREOTIDE LU-177
     Dosage: UNK, ONCE/SINGLE
     Route: 065
     Dates: start: 20220221, end: 20220221
  6. LUTATHERA [Suspect]
     Active Substance: LUTETIUM OXODOTREOTIDE LU-177
     Dosage: UNK, ONCE/SINGLE
     Route: 065
     Dates: start: 20220425, end: 20220425

REACTIONS (3)
  - Leukaemia [Unknown]
  - Pancytopenia [Unknown]
  - Off label use [Unknown]
